FAERS Safety Report 4970494-1 (Version None)
Quarter: 2006Q2

REPORT INFORMATION
  Report Type: 
  Country: None (occurrence: None)
  Receive Date: 20060411
  Receipt Date: 20060411
  Transmission Date: 20061013
  Serious: No
  Sender: FDA-Public Use
  Company Number: None

PATIENT
  Age: 72 Year
  Sex: Male
  Weight: 70.3075 kg

DRUGS (1)
  1. LEVAQUIN [Suspect]
     Indication: RESPIRATORY TRACT CONGESTION
     Dosage: 1 PER DAY
     Dates: start: 20060314, end: 20060318

REACTIONS (5)
  - ADVERSE DRUG REACTION [None]
  - DIFFICULTY IN WALKING [None]
  - INFLAMMATION [None]
  - PAIN [None]
  - TENDON DISORDER [None]
